FAERS Safety Report 5370901-9 (Version None)
Quarter: 2007Q2

REPORT INFORMATION
  Report Type: 
  Country: None (occurrence: None)
  Receive Date: 20070626
  Receipt Date: 20070615
  Transmission Date: 20071010
  Serious: Yes (Death, Other)
  Sender: FDA-Public Use
  Company Number: US-SHR-US-2007-006394

PATIENT
  Age: 72 Year
  Sex: Male
  Weight: 89.796 kg

DRUGS (16)
  1. MAGNEVIST [Suspect]
     Dosage: UNK, 1 DOSE
     Route: 042
     Dates: start: 20020817, end: 20020817
  2. MAGNEVIST [Suspect]
     Dosage: UNK, 1 DOSE
     Dates: start: 19970211, end: 19970211
  3. MAGNEVIST [Suspect]
     Dosage: UNK, 1 DOSE
     Dates: start: 19981204, end: 19981204
  4. COUMADIN [Concomitant]
  5. EFFEXOR [Concomitant]
  6. COLACE [Concomitant]
  7. TYLENOL [Concomitant]
  8. NPH INSULIN [Concomitant]
  9. INSULIN [Concomitant]
  10. ASPIRIN [Concomitant]
  11. NEPHROCAPS [Concomitant]
  12. NEURONTIN [Concomitant]
  13. CALCIUM ACETATE [Concomitant]
  14. EUCERIN CREME [Concomitant]
  15. ARANESP [Concomitant]
  16. EPOGEN [Concomitant]

REACTIONS (2)
  - NEPHROGENIC FIBROSING DERMOPATHY [None]
  - RESTRICTIVE PULMONARY DISEASE [None]
